FAERS Safety Report 13355409 (Version 1)
Quarter: 2017Q1

REPORT INFORMATION
  Report Type: Spontaneous
  Country: US (occurrence: US)
  Receive Date: 20170321
  Receipt Date: 20170321
  Transmission Date: 20170429
  Serious: Yes (Hospitalization, Other)
  Sender: FDA-Public Use
  Company Number: US-MYLANLABS-2017M1017492

PATIENT

DRUGS (2)
  1. TACROLIMUS. [Suspect]
     Active Substance: TACROLIMUS
     Indication: IMMUNOSUPPRESSANT DRUG THERAPY
     Route: 065
  2. ACETAZOLAMIDE. [Interacting]
     Active Substance: ACETAZOLAMIDE
     Indication: INTRACRANIAL PRESSURE INCREASED
     Route: 065

REACTIONS (5)
  - Thrombotic microangiopathy [Recovering/Resolving]
  - Cavernous sinus thrombosis [Recovering/Resolving]
  - Retinal neovascularisation [Not Recovered/Not Resolved]
  - Cataract [Not Recovered/Not Resolved]
  - Chorioretinal folds [Not Recovered/Not Resolved]
